FAERS Safety Report 5267892-8 (Version None)
Quarter: 2007Q1

REPORT INFORMATION
  Report Type: 
  Country: None (occurrence: None)
  Receive Date: 20061213
  Receipt Date: 20041216
  Transmission Date: 20070707
  Serious: No
  Sender: FDA-Public Use
  Company Number: 2004UW25651

PATIENT
  Age: 64 Year
  Sex: Female
  Weight: 38.1 kg

DRUGS (2)
  1. IRESSA [Suspect]
     Indication: NON-SMALL CELL LUNG CANCER
  2. MULTIPLE MEDICATIONS [Concomitant]

REACTIONS (1)
  - INTERSTITIAL LUNG DISEASE [None]
